FAERS Safety Report 16655725 (Version 1)
Quarter: 2019Q3

REPORT INFORMATION
  Report Type: Spontaneous
  Country: FR (occurrence: FR)
  Receive Date: 20190801
  Receipt Date: 20190801
  Transmission Date: 20191004
  Serious: Yes (Hospitalization)
  Sender: FDA-Public Use
  Company Number: FR-ACCORD-150014

PATIENT
  Age: 85 Year
  Sex: Male

DRUGS (13)
  1. TAHOR [Concomitant]
     Active Substance: ATORVASTATIN CALCIUM
  2. MOVICOL [Concomitant]
     Active Substance: POLYETHYLENE GLYCOL 3350\POTASSIUM CHLORIDE\SODIUM BICARBONATE\SODIUM CHLORIDE
  3. DOLIPRAN [Concomitant]
  4. KARDEGIC [Concomitant]
     Active Substance: ASPIRIN DL-LYSINE
  5. LANTUS [Concomitant]
     Active Substance: INSULIN GLARGINE
  6. LANSOPRAZOLE. [Concomitant]
     Active Substance: LANSOPRAZOLE
  7. RAMIPRIL. [Suspect]
     Active Substance: RAMIPRIL
     Indication: HYPERTENSION
     Route: 048
     Dates: end: 20190704
  8. CETIRIZINE [Concomitant]
     Active Substance: CETIRIZINE HYDROCHLORIDE
  9. LEVOTHYROX [Concomitant]
     Active Substance: LEVOTHYROXINE
  10. ADANCOR [Concomitant]
     Active Substance: NICORANDIL
  11. CARDENSIEL [Concomitant]
     Active Substance: BISOPROLOL FUMARATE
  12. PERMIXON [Concomitant]
     Active Substance: HERBALS\SAW PALMETTO
  13. HUMALOG [Concomitant]
     Active Substance: INSULIN LISPRO

REACTIONS (2)
  - Dehydration [Recovered/Resolved]
  - Hyponatraemia [Recovered/Resolved]

NARRATIVE: CASE EVENT DATE: 20190704
